FAERS Safety Report 11269446 (Version 1)
Quarter: 2015Q3

REPORT INFORMATION
  Report Type: Report from Study
  Country: AU (occurrence: AU)
  Receive Date: 20150714
  Receipt Date: 20150714
  Transmission Date: 20151125
  Serious: No
  Sender: FDA-Public Use
  Company Number: AU-ELI_LILLY_AND_COMPANY-AU201503006688

PATIENT
  Sex: Male

DRUGS (3)
  1. LISPRO 25LIS75NPL KWIKPEN / MIRIOPEN [Suspect]
     Active Substance: INSULIN LISPRO
     Indication: WEIGHT DECREASED
  2. METFORMIN [Concomitant]
     Active Substance: METFORMIN HYDROCHLORIDE
  3. LISPRO 25LIS75NPL KWIKPEN / MIRIOPEN [Suspect]
     Active Substance: INSULIN LISPRO
     Indication: HYPERGLYCAEMIA
     Dosage: 15/12/14, TID
     Route: 065

REACTIONS (2)
  - Weight increased [Not Recovered/Not Resolved]
  - Hyperglycaemia [Not Recovered/Not Resolved]
